FAERS Safety Report 5798266-9 (Version None)
Quarter: 2008Q3

REPORT INFORMATION
  Report Type: 
  Country: None (occurrence: None)
  Receive Date: 20080701
  Receipt Date: 20080623
  Transmission Date: 20090109
  Serious: No
  Sender: FDA-Public Use
  Company Number: APP200800558

PATIENT

DRUGS (1)
  1. HEPARIN SODIUM [Suspect]
     Indication: DIALYSIS

REACTIONS (2)
  - ANTIBODY TEST POSITIVE [None]
  - PLATELET COUNT DECREASED [None]
